FAERS Safety Report 6203084-3 (Version None)
Quarter: 2009Q2

REPORT INFORMATION
  Report Type: 
  Country: None (occurrence: None)
  Receive Date: 20090521
  Receipt Date: 20090521
  Transmission Date: 20091009
  Serious: No
  Sender: FDA-Public Use
  Company Number: None

PATIENT
  Age: 49 Year
  Sex: Female
  Weight: 54.8852 kg

DRUGS (2)
  1. EVISTA [Suspect]
     Indication: OSTEOPOROSIS
     Dosage: 60MG ONCE A DAY PO
     Route: 048
     Dates: start: 20090106, end: 20090511
  2. WELLBUTRIN XL [Concomitant]

REACTIONS (1)
  - WEIGHT INCREASED [None]
